FAERS Safety Report 7957663-3 (Version None)
Quarter: 2011Q4

REPORT INFORMATION
  Report Type: 
  Country: None (occurrence: None)
  Receive Date: 20111205
  Receipt Date: 20111124
  Transmission Date: 20120403
  Serious: Yes (Hospitalization)
  Sender: FDA-Public Use
  Company Number: PHHY2011FR103344

PATIENT
  Sex: Male

DRUGS (8)
  1. EXELON [Suspect]
     Dosage: 9.5MG/24H ONCE DAILY
     Route: 062
     Dates: end: 20101230
  2. GLUCOPHAGE [Concomitant]
     Dosage: 1 DF, TID
     Route: 048
  3. PLAVIX [Concomitant]
     Dosage: 1 DF, DAILY
     Route: 048
  4. LYRICA [Concomitant]
     Dosage: 1 DF, BID
     Route: 048
  5. ALFUZOSIN HCL [Concomitant]
     Dosage: 1 DF, DAILY
     Route: 048
  6. MODOPAR [Concomitant]
     Dosage: 1 DF, TID (100MG/25MG)
     Route: 048
  7. ATORVASTATIN CALCIUM [Concomitant]
     Dosage: 1 DF, DAILY
     Route: 048
  8. BISOPROLOL FUMARATE [Suspect]
     Dosage: 0.5 DF, UNK
     Route: 048
     Dates: end: 20101230

REACTIONS (7)
  - MALAISE [None]
  - HYPERHIDROSIS [None]
  - NEUROLOGICAL DECOMPENSATION [None]
  - ATRIOVENTRICULAR BLOCK FIRST DEGREE [None]
  - BRADYCARDIA [None]
  - SINUS BRADYCARDIA [None]
  - PALLOR [None]
